FAERS Safety Report 8080645-0 (Version None)
Quarter: 2012Q1

REPORT INFORMATION
  Report Type: 
  Country: None (occurrence: None)
  Receive Date: 20120130
  Receipt Date: 20120120
  Transmission Date: 20120608
  Serious: No
  Sender: FDA-Public Use
  Company Number: PHEH2011US012769

PATIENT
  Sex: Female

DRUGS (6)
  1. ZOLOFT [Concomitant]
     Indication: DEPRESSION
     Dates: start: 20110806
  2. JANUVIA [Concomitant]
     Indication: DIABETES MELLITUS
  3. SAPHRIS [Concomitant]
     Indication: BIPOLAR DISORDER
     Dates: start: 20111102
  4. NUVIGIL [Concomitant]
  5. GILENYA [Suspect]
     Indication: MULTIPLE SCLEROSIS
     Dosage: 0.5 MG, DAILY
     Route: 048
     Dates: start: 20110812
  6. GABAPENTIN [Concomitant]
     Indication: TRIGEMINAL NEURALGIA
     Dates: start: 20111112

REACTIONS (4)
  - APATHY [None]
  - FALL [None]
  - SKIN INJURY [None]
  - DEPRESSION [None]
